FAERS Safety Report 9551694 (Version 4)
Quarter: 2015Q2

REPORT INFORMATION
  Report Type: Report from Study
  Country: CA (occurrence: CA)
  Receive Date: 20130925
  Receipt Date: 20150427
  Transmission Date: 20150821
  Serious: Yes (Life-Threatening, Hospitalization)
  Sender: FDA-Public Use
  Company Number: CA-ROCHE-1279970

PATIENT
  Sex: Male

DRUGS (23)
  1. SOLU-MEDROL [Concomitant]
     Active Substance: METHYLPREDNISOLONE SODIUM SUCCINATE
     Route: 042
     Dates: start: 20120807
  2. PREDNISONE. [Concomitant]
     Active Substance: PREDNISONE
  3. METFORMIN [Suspect]
     Active Substance: METFORMIN HYDROCHLORIDE
     Indication: PRODUCT USED FOR UNKNOWN INDICATION
     Route: 065
     Dates: end: 201310
  4. BENADRYL [Concomitant]
     Active Substance: DIPHENHYDRAMINE HYDROCHLORIDE
     Route: 048
     Dates: start: 20120807
  5. DOCUSATE SODIUM. [Concomitant]
     Active Substance: DOCUSATE SODIUM
  6. PROLIA [Concomitant]
     Active Substance: DENOSUMAB
     Route: 065
     Dates: start: 201309
  7. IMURAN [Concomitant]
     Active Substance: AZATHIOPRINE
  8. PANTOPRAZOLE [Concomitant]
     Active Substance: PANTOPRAZOLE SODIUM
  9. ACETYLCYSTEINE. [Concomitant]
     Active Substance: ACETYLCYSTEINE
  10. SPIRIVA [Concomitant]
     Active Substance: TIOTROPIUM BROMIDE MONOHYDRATE
  11. BISOPROLOL [Suspect]
     Active Substance: BISOPROLOL
     Indication: PRODUCT USED FOR UNKNOWN INDICATION
     Route: 065
     Dates: end: 2013
  12. ACETYLSALICYLIC ACID [Concomitant]
     Active Substance: ASPIRIN
  13. DILANTIN [Concomitant]
     Active Substance: PHENYTOIN
  14. SENOKOT [Concomitant]
     Active Substance: SENNOSIDES
  15. RITUXAN [Suspect]
     Active Substance: RITUXIMAB
     Dosage: LAST RITUXIMAB RECEIVED ON 10/DEC/2013
     Route: 042
  16. CLOBAZAM [Concomitant]
     Active Substance: CLOBAZAM
  17. LACTULOSE. [Concomitant]
     Active Substance: LACTULOSE
     Route: 065
  18. LIPITOR [Concomitant]
     Active Substance: ATORVASTATIN CALCIUM
  19. OXIS-TURBOHALER [Concomitant]
  20. RITUXAN [Suspect]
     Active Substance: RITUXIMAB
     Indication: RHEUMATOID ARTHRITIS
     Route: 042
     Dates: start: 20120807, end: 20131210
  21. RITUXAN [Suspect]
     Active Substance: RITUXIMAB
     Route: 042
     Dates: start: 20120821, end: 20120821
  22. TYLENOL [Concomitant]
     Active Substance: ACETAMINOPHEN
     Route: 048
     Dates: start: 20120807
  23. VITAMIN B12 [Concomitant]
     Active Substance: CYANOCOBALAMIN

REACTIONS (6)
  - Nausea [Unknown]
  - Pulmonary fibrosis [Unknown]
  - Weight decreased [Unknown]
  - Atrioventricular block [Recovered/Resolved]
  - Abdominal distension [Unknown]
  - Lung disorder [Unknown]

NARRATIVE: CASE EVENT DATE: 2013
